FAERS Safety Report 5511990-8 (Version None)
Quarter: 2007Q4

REPORT INFORMATION
  Report Type: 
  Country: None (occurrence: None)
  Receive Date: 20071109
  Receipt Date: 20071030
  Transmission Date: 20080405
  Serious: Yes (Life-Threatening)
  Sender: FDA-Public Use
  Company Number: US-MERCK-0708USA05557

PATIENT
  Sex: Female

DRUGS (7)
  1. PRIMAXIN [Suspect]
     Indication: SEPSIS
     Route: 042
     Dates: start: 20070525, end: 20070531
  2. PRIMAXIN [Suspect]
     Indication: CITROBACTER INFECTION
     Route: 042
     Dates: start: 20070525, end: 20070531
  3. ZOSYN [Concomitant]
     Indication: INFECTION
     Route: 042
     Dates: start: 20070523, end: 20070527
  4. LOVENOX [Concomitant]
     Indication: THROMBOSIS PROPHYLAXIS
     Route: 058
     Dates: start: 20070523, end: 20070525
  5. METOPROLOL SUCCINATE [Concomitant]
     Indication: HYPERTENSION
     Route: 048
     Dates: start: 20070523, end: 20070601
  6. LEXAPRO [Concomitant]
     Indication: DEPRESSION
     Route: 048
     Dates: start: 20070523, end: 20070527
  7. AZATHIOPRINE [Concomitant]
     Indication: SARCOIDOSIS
     Route: 048
     Dates: start: 20070523, end: 20070527

REACTIONS (2)
  - CONVULSION [None]
  - HYPOGLYCAEMIA [None]
